FAERS Safety Report 13943431 (Version 1)
Quarter: 2017Q3

REPORT INFORMATION
  Report Type: Spontaneous
  Country: FI (occurrence: FI)
  Receive Date: 20170907
  Receipt Date: 20170907
  Transmission Date: 20171128
  Serious: Yes (Other)
  Sender: FDA-Public Use
  Company Number: FI-009507513-1708FIN006057

PATIENT
  Age: 33 Year
  Sex: Female

DRUGS (2)
  1. PROPRAL [Concomitant]
     Dosage: UNK, WHEN NEED (PRN)
  2. IVERMECTIN. [Suspect]
     Active Substance: IVERMECTIN
     Indication: ACARODERMATITIS
     Dosage: 3 MG, ONCE
     Route: 048
     Dates: start: 20170807, end: 20170807

REACTIONS (3)
  - Depressed level of consciousness [Recovered/Resolved]
  - Nausea [Recovered/Resolved]
  - Dizziness [Recovered/Resolved]

NARRATIVE: CASE EVENT DATE: 20170807
